FAERS Safety Report 4972168-X (Version None)
Quarter: 2006Q2

REPORT INFORMATION
  Report Type: 
  Country: None (occurrence: None)
  Receive Date: 20060413
  Receipt Date: 20060407
  Transmission Date: 20061013
  Serious: Yes (Life-Threatening, Hospitalization)
  Sender: FDA-Public Use
  Company Number: PHNU2006PL01653

PATIENT
  Age: 75 Year
  Sex: Female

DRUGS (6)
  1. EXELON [Suspect]
     Indication: DEMENTIA ALZHEIMER'S TYPE
     Dosage: 12 MG/DAY
     Route: 048
     Dates: start: 20041213, end: 20050816
  2. EXELON [Suspect]
     Dosage: 9 MG/DAY
     Route: 048
     Dates: start: 20030407, end: 20041212
  3. RISPOLEPT [Concomitant]
     Dosage: 1 MG, QD
     Route: 048
     Dates: start: 20050707, end: 20050816
  4. BESTPIRIN [Concomitant]
     Dosage: 32 MG/DAY
     Route: 048
     Dates: start: 20040901, end: 20050816
  5. ORTANOL [Concomitant]
     Dosage: 20 MG, QD
     Route: 048
     Dates: start: 20040901, end: 20050816
  6. DUSPATALIN [Concomitant]
     Dosage: 1 DF, BID
     Route: 048
     Dates: start: 20040901, end: 20050816

REACTIONS (2)
  - ELECTROLYTE IMBALANCE [None]
  - VOMITING [None]
